FAERS Safety Report 16340718 (Version 1)
Quarter: 2019Q2

REPORT INFORMATION
  Report Type: Spontaneous
  Country: US (occurrence: US)
  Receive Date: 20190522
  Receipt Date: 20190522
  Transmission Date: 20190711
  Serious: No
  Sender: FDA-Public Use
  Company Number: US-BIOGEN-2019BI00740292

PATIENT
  Sex: Female
  Weight: 130.75 kg

DRUGS (6)
  1. AMANTADINE HCL [Concomitant]
     Active Substance: AMANTADINE HYDROCHLORIDE
     Route: 065
  2. SPIRONOLACTONE. [Concomitant]
     Active Substance: SPIRONOLACTONE
     Route: 065
  3. AMITIZA [Concomitant]
     Active Substance: LUBIPROSTONE
     Route: 065
  4. PRAZOSIN HCL [Concomitant]
     Active Substance: PRAZOSIN HYDROCHLORIDE
     Route: 065
  5. TECFIDERA [Suspect]
     Active Substance: DIMETHYL FUMARATE
     Indication: MULTIPLE SCLEROSIS
     Route: 048
  6. BUMETANIDE. [Concomitant]
     Active Substance: BUMETANIDE
     Route: 065

REACTIONS (3)
  - Depression [Not Recovered/Not Resolved]
  - Feeling of despair [Unknown]
  - Decreased interest [Unknown]
